FAERS Safety Report 18346913 (Version 1)
Quarter: 2020Q4

REPORT INFORMATION
  Report Type: Spontaneous
  Country: CO (occurrence: CO)
  Receive Date: 20201005
  Receipt Date: 20201005
  Transmission Date: 20210114
  Serious: Yes (Hospitalization)
  Sender: FDA-Public Use
  Company Number: CO-BIOMARINAP-CO-2020-132312

PATIENT
  Age: 26 Year
  Sex: Female
  Weight: 25 kg

DRUGS (2)
  1. NAGLAZYME [Suspect]
     Active Substance: GALSULFASE
     Indication: MUCOPOLYSACCHARIDOSIS VI
     Dosage: 25 MILLIGRAM, QW
     Route: 042
     Dates: start: 20100920
  2. KEPPRA [Concomitant]
     Active Substance: LEVETIRACETAM
     Indication: PRODUCT USED FOR UNKNOWN INDICATION
     Dosage: 600 MILLIGRAM, TID
     Route: 048

REACTIONS (1)
  - Corneal transplant [Unknown]

NARRATIVE: CASE EVENT DATE: 20200913
